FAERS Safety Report 4676539-0 (Version None)
Quarter: 2005Q2

REPORT INFORMATION
  Report Type: 
  Country: None (occurrence: None)
  Receive Date: 20050527
  Receipt Date: 20050519
  Transmission Date: 20051028
  Serious: Yes (Hospitalization)
  Sender: FDA-Public Use
  Company Number: US-ABBOTT-05P-163-0300947-00

PATIENT
  Sex: Female
  Weight: 56.75 kg

DRUGS (3)
  1. TARKA [Suspect]
     Indication: BLOOD PRESSURE INCREASED
     Dosage: 4/240 MG
     Route: 048
     Dates: start: 20041217, end: 20050205
  2. PROPRANOLOL HYDROCHLORIDE [Concomitant]
     Indication: HEART RATE INCREASED
     Route: 048
     Dates: end: 20041217
  3. ALENDRONATE SODIUM [Concomitant]
     Indication: OSTEOPOROSIS
     Route: 048
     Dates: start: 19960101

REACTIONS (5)
  - BALANCE DISORDER [None]
  - BLOOD PRESSURE INCREASED [None]
  - CONTUSION [None]
  - DIFFICULTY IN WALKING [None]
  - FALL [None]
